FAERS Safety Report 5501385-5 (Version None)
Quarter: 2007Q4

REPORT INFORMATION
  Report Type: 
  Country: None (occurrence: None)
  Receive Date: 20071026
  Receipt Date: 20071010
  Transmission Date: 20080405
  Serious: Yes (Life-Threatening)
  Sender: FDA-Public Use
  Company Number: 8027477

PATIENT
  Age: 18 Year
  Sex: Male
  Weight: 64 kg

DRUGS (7)
  1. EQUASYM [Suspect]
  2. EQUASYM [Suspect]
     Dosage: 100 MG ONCE PO
     Route: 048
     Dates: start: 20071009, end: 20071009
  3. APC /00391201/ [Suspect]
     Dosage: 5 DF ONCE PO
     Route: 048
     Dates: start: 20071009, end: 20071009
  4. DOLOMO /00012701/ [Suspect]
     Dosage: 2 DF ONCE PO
     Route: 048
     Dates: start: 20071009, end: 20071009
  5. ERGENYL [Suspect]
     Dosage: 300 MG ONCE PO
     Route: 048
     Dates: start: 20071009, end: 20071009
  6. PARACETAMOL [Suspect]
     Dosage: 2000 MG ONCE PO
     Route: 048
     Dates: start: 20071009, end: 20071009
  7. RISPERDAL [Suspect]
     Dosage: 5 MG ONCE PO
     Route: 048
     Dates: start: 20071009, end: 20071009

REACTIONS (5)
  - ALANINE AMINOTRANSFERASE INCREASED [None]
  - ASPARTATE AMINOTRANSFERASE INCREASED [None]
  - BLOOD CREATINE PHOSPHOKINASE INCREASED [None]
  - SUICIDE ATTEMPT [None]
  - TACHYCARDIA [None]
